FAERS Safety Report 14766608 (Version 1)
Quarter: 2018Q2

REPORT INFORMATION
  Report Type: Report from Study
  Country: None (occurrence: CA)
  Receive Date: 20180416
  Receipt Date: 20180416
  Transmission Date: 20180711
  Serious: Yes (Other)
  Sender: FDA-Public Use
  Company Number: CA-ABBVIE-18K-028-2316224-00

PATIENT
  Sex: Female

DRUGS (1)
  1. HUMIRA [Suspect]
     Active Substance: ADALIMUMAB
     Indication: CROHN^S DISEASE
     Route: 058
     Dates: start: 20100702, end: 201802

REACTIONS (4)
  - Poisoning [Unknown]
  - Gastrointestinal stoma complication [Unknown]
  - Blood test abnormal [Unknown]
  - Intestinal stenosis [Unknown]

NARRATIVE: CASE EVENT DATE: 2018
